FAERS Safety Report 13036928 (Version 1)
Quarter: 2016Q4

REPORT INFORMATION
  Report Type: Spontaneous
  Country: CA (occurrence: CA)
  Receive Date: 20161216
  Receipt Date: 20161216
  Transmission Date: 20170207
  Serious: Yes (Death, Life-Threatening)
  Sender: FDA-Public Use
  Company Number: CA-PFIZER INC-2016574414

PATIENT
  Age: 20 Day
  Sex: Male
  Weight: 9.2 kg

DRUGS (6)
  1. CHLORAMPHENICOL [Suspect]
     Active Substance: CHLORAMPHENICOL
     Indication: MENINGITIS NEONATAL
     Dosage: UNK (DURATION OF ANTIMICROBIAL TREATMENT:11)
  2. AMPICILLIN [Concomitant]
     Active Substance: AMPICILLIN
     Indication: MENINGITIS NEONATAL
     Dosage: UNK
  3. DOXYCYCLINE HYCLATE. [Suspect]
     Active Substance: DOXYCYCLINE HYCLATE
     Indication: MENINGITIS NEONATAL
     Dosage: UNK (DURATION OF ANTIMICROBIAL TREATMENT:16)
  4. GENTAMICIN. [Concomitant]
     Active Substance: GENTAMICIN
     Indication: MENINGITIS NEONATAL
     Dosage: UNK
  5. PENICILLIN [Concomitant]
     Active Substance: PENICILLIN
     Indication: MENINGITIS NEONATAL
     Dosage: UNK
  6. VANCOMYCIN [Concomitant]
     Active Substance: VANCOMYCIN
     Indication: MENINGITIS NEONATAL
     Dosage: UNK

REACTIONS (1)
  - Drug ineffective [Fatal]
